FAERS Safety Report 5166949-X (Version None)
Quarter: 2006Q4

REPORT INFORMATION
  Report Type: 
  Country: None (occurrence: None)
  Receive Date: 20061207
  Receipt Date: 20061127
  Transmission Date: 20070319
  Serious: Yes (Hospitalization)
  Sender: FDA-Public Use
  Company Number: US-ELI_LILLY_AND_COMPANY-US200611004920

PATIENT
  Age: 40 Year
  Sex: Male

DRUGS (2)
  1. HUMATROPE [Suspect]
     Indication: HYPOPITUITARISM
     Dates: start: 19790101
  2. HUMATROPE [Suspect]
     Dosage: UNK, UNK
     Dates: start: 20050101

REACTIONS (1)
  - IMPULSIVE BEHAVIOUR [None]
